FAERS Safety Report 11120542 (Version 1)
Quarter: 2015Q2

REPORT INFORMATION
  Report Type: Spontaneous
  Country: US (occurrence: US)
  Receive Date: 20150519
  Receipt Date: 20150519
  Transmission Date: 20150821
  Serious: Yes (Hospitalization)
  Sender: FDA-Public Use
  Company Number: US-009507513-1505USA006779

PATIENT
  Sex: Female

DRUGS (1)
  1. CLARINEX-D 12 HOUR [Suspect]
     Active Substance: DESLORATADINE\PSEUDOEPHEDRINE SULFATE
     Dosage: STRENGTH: 2.5/120 (UNIT UNKNOWN)
     Route: 048

REACTIONS (1)
  - Abdominal discomfort [Unknown]
